FAERS Safety Report 7665618-1 (Version None)
Quarter: 2011Q3

REPORT INFORMATION
  Report Type: 
  Country: None (occurrence: None)
  Receive Date: 20110806
  Receipt Date: 20110714
  Transmission Date: 20111222
  Serious: No
  Sender: FDA-Public Use
  Company Number: US-ABBOTT-11P-163-0839060-00

PATIENT
  Sex: Male
  Weight: 65.83 kg

DRUGS (4)
  1. ASPIRIN [Concomitant]
     Indication: PROPHYLAXIS
     Route: 048
  2. NIASPAN [Suspect]
     Indication: BLOOD CHOLESTEROL INCREASED
  3. NIASPAN [Suspect]
     Indication: LOW DENSITY LIPOPROTEIN INCREASED
     Route: 048
     Dates: start: 20110506
  4. SIMVASTATIN [Concomitant]
     Indication: BLOOD CHOLESTEROL INCREASED
     Route: 048
     Dates: start: 20090101

REACTIONS (2)
  - MUSCULOSKELETAL PAIN [None]
  - FLUSHING [None]
